FAERS Safety Report 23924539 (Version 1)
Quarter: 2024Q2

REPORT INFORMATION
  Report Type: Spontaneous
  Country: DE (occurrence: DE)
  Receive Date: 20240531
  Receipt Date: 20240531
  Transmission Date: 20240715
  Serious: Yes (Other)
  Sender: FDA-Public Use
  Company Number: None

PATIENT
  Age: 17 Year
  Sex: Female
  Weight: 56 kg

DRUGS (1)
  1. QUETIAPINE [Suspect]
     Active Substance: QUETIAPINE
     Indication: Bipolar disorder
     Dosage: 0-0-450 MG/D
     Route: 048
     Dates: start: 20240313, end: 20240325

REACTIONS (5)
  - Toxicity to various agents [Recovered/Resolved]
  - Psychotic symptom [Recovering/Resolving]
  - Electrocardiogram T wave biphasic [Recovered/Resolved]
  - Electrocardiogram repolarisation abnormality [Recovered/Resolved]
  - Mania [Recovering/Resolving]

NARRATIVE: CASE EVENT DATE: 20240317
